FAERS Safety Report 7351056-8 (Version None)
Quarter: 2011Q1

REPORT INFORMATION
  Report Type: 
  Country: None (occurrence: None)
  Receive Date: 20110314
  Receipt Date: 20110308
  Transmission Date: 20110831
  Serious: Yes (Other)
  Sender: FDA-Public Use
  Company Number: CHPA2011US03754

PATIENT
  Age: 64 Year
  Sex: Female
  Weight: 68.027 kg

DRUGS (1)
  1. PREVACID 24 HR [Suspect]
     Indication: DUODENAL ULCER
     Dosage: 15 MG, ONCE/SINGLE
     Route: 048
     Dates: start: 20110226, end: 20110226

REACTIONS (3)
  - OFF LABEL USE [None]
  - INCORRECT DRUG ADMINISTRATION DURATION [None]
  - ANAPHYLACTIC REACTION [None]
